FAERS Safety Report 8453662-6 (Version None)
Quarter: 2012Q2

REPORT INFORMATION
  Report Type: 
  Country: None (occurrence: None)
  Receive Date: 20120620
  Receipt Date: 20120611
  Transmission Date: 20120825
  Serious: Yes (Other)
  Sender: FDA-Public Use
  Company Number: US-ASTRAZENECA-2012SE39192

PATIENT
  Age: 89 Year
  Sex: Female
  Weight: 68.5 kg

DRUGS (3)
  1. TOPROL-XL [Suspect]
     Route: 048
     Dates: start: 20120601
  2. OTHER MEDICATIONS [Concomitant]
  3. TOPROL-XL [Suspect]
     Indication: HYPERTENSION
     Route: 048
     Dates: start: 19970101

REACTIONS (4)
  - HEART RATE INCREASED [None]
  - MUSCULAR WEAKNESS [None]
  - GAIT DISTURBANCE [None]
  - FATIGUE [None]
